FAERS Safety Report 21972171 (Version 3)
Quarter: 2023Q1

REPORT INFORMATION
  Report Type: Report from Study
  Country: US (occurrence: CA)
  Receive Date: 20230209
  Receipt Date: 20230330
  Transmission Date: 20230418
  Serious: Yes (Other)
  Sender: FDA-Public Use
  Company Number: US-BAYER-2023P009038

PATIENT
  Age: 26 Year
  Sex: Female

DRUGS (1)
  1. KYLEENA [Suspect]
     Active Substance: LEVONORGESTREL
     Dosage: 17.5?G/DAY
     Route: 015
     Dates: start: 20230202, end: 20230202

REACTIONS (2)
  - Device breakage [Recovered/Resolved]
  - Complication of device insertion [None]

NARRATIVE: CASE EVENT DATE: 20230202
